FAERS Safety Report 6864680-3 (Version None)
Quarter: 2010Q3

REPORT INFORMATION
  Report Type: 
  Country: None (occurrence: None)
  Receive Date: 20100721
  Receipt Date: 20080402
  Transmission Date: 20110219
  Serious: No
  Sender: FDA-Public Use
  Company Number: US-PFIZER INC-2008029831

PATIENT
  Sex: Male
  Weight: 79.5 kg

DRUGS (2)
  1. CHANTIX [Suspect]
     Indication: SMOKING CESSATION THERAPY
     Dates: start: 20080104, end: 20080229
  2. DRUG, UNSPECIFIED [Concomitant]

REACTIONS (1)
  - ABDOMINAL PAIN UPPER [None]
